FAERS Safety Report 12249129 (Version 1)
Quarter: 2016Q2

REPORT INFORMATION
  Report Type: Spontaneous
  Country: JP (occurrence: JP)
  Receive Date: 20160408
  Receipt Date: 20160408
  Transmission Date: 20160815
  Serious: Yes (Hospitalization, Other)
  Sender: FDA-Public Use
  Company Number: JP-MYLANLABS-2016M1014157

PATIENT

DRUGS (1)
  1. CISPLATIN. [Suspect]
     Active Substance: CISPLATIN
     Indication: HYPOPHARYNGEAL CANCER RECURRENT
     Dosage: 120 MG/BODY
     Route: 065

REACTIONS (5)
  - Perforation [Recovered/Resolved]
  - Pharyngeal stenosis [Recovered/Resolved]
  - Pharyngeal abscess [Recovered/Resolved]
  - Infective spondylitis [Recovering/Resolving]
  - Extradural abscess [Recovered/Resolved]

NARRATIVE: CASE EVENT DATE: 2014
